FAERS Safety Report 6579241-3 (Version None)
Quarter: 2010Q1

REPORT INFORMATION
  Report Type: 
  Country: None (occurrence: None)
  Receive Date: 20100212
  Receipt Date: 20100208
  Transmission Date: 20100710
  Serious: Yes (Other)
  Sender: FDA-Public Use
  Company Number: BR-PFIZER INC-2010016358

PATIENT
  Age: 28 Year
  Sex: Female

DRUGS (1)
  1. CHAMPIX [Suspect]
     Indication: SMOKING CESSATION THERAPY
     Dosage: UNK
     Route: 048
     Dates: start: 20090522, end: 20090701

REACTIONS (6)
  - AGITATION [None]
  - COLITIS [None]
  - DIZZINESS [None]
  - DRUG ADMINISTRATION ERROR [None]
  - GASTRITIS [None]
  - NAUSEA [None]
